FAERS Safety Report 15530782 (Version 1)
Quarter: 2018Q4

REPORT INFORMATION
  Report Type: Spontaneous
  Country: KR (occurrence: KR)
  Receive Date: 20181018
  Receipt Date: 20181018
  Transmission Date: 20190205
  Serious: Yes (Other)
  Sender: FDA-Public Use
  Company Number: KR-009507513-1409KOR005851

PATIENT
  Age: 85 Year
  Sex: Male
  Weight: 52.8 kg

DRUGS (2)
  1. BRIDION [Suspect]
     Active Substance: SUGAMMADEX
     Indication: NEUROMUSCULAR BLOCKADE REVERSAL
     Dosage: 105.6 MG (ALSO REPORTED AS 2 MG/KG), ONCE
     Route: 042
     Dates: start: 20140704, end: 20140704
  2. VECURONIUM BROMIDE. [Suspect]
     Active Substance: VECURONIUM BROMIDE
     Indication: NEUROMUSCULAR BLOCKADE
     Dosage: 1 MG, BID
     Route: 042
     Dates: start: 20140704, end: 20140704

REACTIONS (1)
  - Postoperative delirium [Recovered/Resolved]

NARRATIVE: CASE EVENT DATE: 20140707
